FAERS Safety Report 8572363-7 (Version None)
Quarter: 2012Q3

REPORT INFORMATION
  Report Type: 
  Country: None (occurrence: None)
  Receive Date: 20120806
  Receipt Date: 20120726
  Transmission Date: 20120928
  Serious: Yes (Other)
  Sender: FDA-Public Use
  Company Number: CN-ASTRAZENECA-2012SE54571

PATIENT
  Sex: Female
  Weight: 56 kg

DRUGS (6)
  1. ZOCOR [Concomitant]
     Route: 048
  2. ORYZANOL [Concomitant]
  3. JOLETHIN [Concomitant]
     Route: 048
  4. FELODIPINE [Suspect]
     Route: 048
  5. SALVIA MILTIORRHIZA [Concomitant]
     Route: 048
  6. TEAPOL [Concomitant]
     Route: 048

REACTIONS (5)
  - RASH PRURITIC [None]
  - COUGH [None]
  - SPUTUM PURULENT [None]
  - NASAL OBSTRUCTION [None]
  - RHINORRHOEA [None]
